FAERS Safety Report 15051710 (Version 1)
Quarter: 2018Q2

REPORT INFORMATION
  Report Type: Spontaneous
  Country: CA (occurrence: CA)
  Receive Date: 20180601
  Receipt Date: 20180601
  Transmission Date: 20180711
  Serious: Yes (Hospitalization)
  Sender: FDA-Public Use
  Company Number: None

PATIENT
  Age: 3 Year
  Sex: Male
  Weight: 25.4 kg

DRUGS (6)
  1. CYTARABINE. [Suspect]
     Active Substance: CYTARABINE
     Dates: end: 20180506
  2. DEXAMETHASONE. [Suspect]
     Active Substance: DEXAMETHASONE
     Dates: end: 20180520
  3. ONCASPAR [Suspect]
     Active Substance: PEGASPARGASE
     Dates: end: 20180510
  4. METHOTREXATE. [Suspect]
     Active Substance: METHOTREXATE
     Dates: end: 20180515
  5. VINCRISTINE SULFATE. [Suspect]
     Active Substance: VINCRISTINE SULFATE
     Dates: end: 20180522
  6. DAUNORUBICIN [Suspect]
     Active Substance: DAUNORUBICIN
     Dates: end: 20180521

REACTIONS (19)
  - Faeces hard [None]
  - Diarrhoea [None]
  - Respiratory distress [None]
  - Dyschezia [None]
  - General physical health deterioration [None]
  - Ascites [None]
  - Peritonitis [None]
  - Intestinal ischaemia [None]
  - Intra-abdominal fluid collection [None]
  - Abdominal pain [None]
  - Constipation [None]
  - Abdominal distension [None]
  - Hypokalaemia [None]
  - Tachycardia [None]
  - Intestinal perforation [None]
  - Ileus [None]
  - Abdominal discomfort [None]
  - Small intestinal obstruction [None]
  - Pneumoperitoneum [None]

NARRATIVE: CASE EVENT DATE: 20180524
